FAERS Safety Report 22227802 (Version 2)
Quarter: 2023Q2

REPORT INFORMATION
  Report Type: Report from Study
  Country: US (occurrence: US)
  Receive Date: 20230419
  Receipt Date: 20230613
  Transmission Date: 20230722
  Serious: Yes (Other)
  Sender: FDA-Public Use
  Company Number: US-002147023-NVSC2023US085370

PATIENT
  Sex: Female

DRUGS (1)
  1. COSENTYX [Suspect]
     Active Substance: SECUKINUMAB
     Indication: Psoriatic arthropathy
     Dosage: 300 MG, QW
     Route: 058
     Dates: start: 20230315, end: 20230405

REACTIONS (5)
  - Psoriatic arthropathy [Unknown]
  - Pain in extremity [Unknown]
  - Peripheral swelling [Unknown]
  - Erythema [Unknown]
  - Drug ineffective [Unknown]
